FAERS Safety Report 13094233 (Version 2)
Quarter: 2017Q1

REPORT INFORMATION
  Report Type: Report from Study
  Country: US (occurrence: US)
  Receive Date: 20170106
  Receipt Date: 20170112
  Transmission Date: 20170428
  Serious: Yes (Death, Other)
  Sender: FDA-Public Use
  Company Number: US-GILEAD-2017-0252027

PATIENT
  Age: 71 Year
  Sex: Male

DRUGS (1)
  1. RANOLAZINE [Suspect]
     Active Substance: RANOLAZINE
     Indication: ANGINA PECTORIS
     Dosage: REPORTED AS BOTH 1000 MG AND 500 MG FREQUENCY UNSPECIFIED
     Route: 048
     Dates: end: 20161116

REACTIONS (1)
  - Death [Fatal]

NARRATIVE: CASE EVENT DATE: 20161116
